FAERS Safety Report 15907744 (Version 1)
Quarter: 2019Q1

REPORT INFORMATION
  Report Type: Spontaneous
  Country: US (occurrence: US)
  Receive Date: 20190204
  Receipt Date: 20190204
  Transmission Date: 20190417
  Serious: No
  Sender: FDA-Public Use
  Company Number: None

PATIENT
  Age: 44 Year
  Sex: Female
  Weight: 63 kg

DRUGS (5)
  1. ADVIL [Concomitant]
     Active Substance: IBUPROFEN
  2. OXYCOCONE/APAP 10/325 RHOADES PHARMACEUTICLES [Suspect]
     Active Substance: ACETAMINOPHEN\OXYCODONE HYDROCHLORIDE
     Indication: PAIN
     Dosage: ?          QUANTITY:120 TABLET(S);?
     Route: 048
     Dates: start: 20180701, end: 20190201
  3. CITALOPRAM [Concomitant]
     Active Substance: CITALOPRAM HYDROBROMIDE
  4. ALPRAZOLAM. [Concomitant]
     Active Substance: ALPRAZOLAM
  5. ESTRODIAL [Concomitant]
     Active Substance: ESTRADIOL

REACTIONS (5)
  - Drug ineffective [None]
  - Product formulation issue [None]
  - Feeding disorder [None]
  - Nausea [None]
  - Vomiting [None]

NARRATIVE: CASE EVENT DATE: 20180701
